FAERS Safety Report 5655977-3 (Version None)
Quarter: 2008Q1

REPORT INFORMATION
  Report Type: 
  Country: None (occurrence: None)
  Receive Date: 20080307
  Receipt Date: 20080227
  Transmission Date: 20080703
  Serious: Yes (Congenital Anomaly)
  Sender: FDA-Public Use
  Company Number: NL-PFIZER INC-2008018137

PATIENT
  Sex: Male

DRUGS (1)
  1. LIPITOR [Suspect]
     Route: 048

REACTIONS (3)
  - HYDRONEPHROSIS [None]
  - RECTAL ATRESIA [None]
  - RENAL APLASIA [None]
